FAERS Safety Report 9808267 (Version 1)
Quarter: 2014Q1

REPORT INFORMATION
  Report Type: Spontaneous
  Country: CH (occurrence: CH)
  Receive Date: 20140110
  Receipt Date: 20140110
  Transmission Date: 20141002
  Serious: Yes (Other)
  Sender: FDA-Public Use
  Company Number: CH-TEVA-454968ISR

PATIENT
  Age: 51 Year
  Sex: Male

DRUGS (5)
  1. TRAMADOL [Suspect]
     Indication: PAIN
     Dosage: 200 MILLIGRAM DAILY; 2X100MG
     Route: 065
  2. OXYCODONE [Suspect]
     Indication: PAIN
     Dosage: 20 MILLIGRAM DAILY; 2X10MG
     Route: 065
  3. AMITRIPTYLINE [Suspect]
     Indication: PAIN
     Dosage: 10 MILLIGRAM DAILY;
     Route: 065
  4. FLUPIRTINE [Suspect]
     Indication: PAIN
     Dosage: 300 MILLIGRAM DAILY; 3X100MG
     Route: 065
  5. DIMENHYDRINATE [Concomitant]
     Indication: NAUSEA
     Dosage: AS NEEDED
     Route: 065

REACTIONS (4)
  - Drug dependence [Unknown]
  - Inadequate analgesia [Recovering/Resolving]
  - Hyperaesthesia [Unknown]
  - Depression [Unknown]
